FAERS Safety Report 14633472 (Version 2)
Quarter: 2018Q1

REPORT INFORMATION
  Report Type: Spontaneous
  Country: DE (occurrence: DE)
  Receive Date: 20180314
  Receipt Date: 20180326
  Transmission Date: 20180509
  Serious: Yes (Other)
  Sender: FDA-Public Use
  Company Number: DE-ROCHE-2083553

PATIENT
  Sex: Male

DRUGS (1)
  1. ZELBORAF [Suspect]
     Active Substance: VEMURAFENIB
     Indication: ERDHEIM-CHESTER DISEASE
     Route: 065

REACTIONS (6)
  - Off label use [Unknown]
  - Seizure [Unknown]
  - Skin papilloma [Unknown]
  - Rash [Unknown]
  - Intentional product misuse [Unknown]
  - Intentional product use issue [Unknown]
